FAERS Safety Report 16339579 (Version 1)
Quarter: 2019Q2

REPORT INFORMATION
  Report Type: Spontaneous
  Country: US (occurrence: US)
  Receive Date: 20190521
  Receipt Date: 20190521
  Transmission Date: 20190711
  Serious: No
  Sender: FDA-Public Use
  Company Number: US-SA-2019SA136862

PATIENT
  Age: 70 Year
  Sex: Female

DRUGS (3)
  1. DUPIXENT [Suspect]
     Active Substance: DUPILUMAB
     Indication: PSORIASIS
  2. ENBREL [Concomitant]
     Active Substance: ETANERCEPT
  3. DUPIXENT [Suspect]
     Active Substance: DUPILUMAB
     Indication: PSORIATIC ARTHROPATHY
     Dosage: 300 MG, QOW
     Route: 058
     Dates: start: 20180110

REACTIONS (2)
  - Pruritus [Unknown]
  - Product use in unapproved indication [Unknown]

NARRATIVE: CASE EVENT DATE: 20180110
